FAERS Safety Report 15873582 (Version 1)
Quarter: 2019Q1

REPORT INFORMATION
  Report Type: Other
  Country: US (occurrence: US)
  Receive Date: 20190126
  Receipt Date: 20190126
  Transmission Date: 20190417
  Serious: No
  Sender: FDA-Public Use
  Company Number: US-ACORDA-ACO_150249_2018

PATIENT
  Sex: Female
  Weight: 50.34 kg

DRUGS (2)
  1. AMPYRA [Suspect]
     Active Substance: DALFAMPRIDINE
     Indication: GAIT DISTURBANCE
  2. AMPYRA [Suspect]
     Active Substance: DALFAMPRIDINE
     Indication: MULTIPLE SCLEROSIS
     Dosage: 10 MG, BID (EVERY 12 HOURS)
     Route: 048
     Dates: start: 20180404, end: 20180528

REACTIONS (9)
  - Cystitis [Unknown]
  - Weight decreased [Unknown]
  - Headache [Unknown]
  - Nausea [Unknown]
  - Dyspnoea [Unknown]
  - Formication [Unknown]
  - Kidney infection [Unknown]
  - Pruritus [Unknown]
  - Dizziness [Unknown]

NARRATIVE: CASE EVENT DATE: 2018
